FAERS Safety Report 4650895-1 (Version None)
Quarter: 2005Q2

REPORT INFORMATION
  Report Type: 
  Country: None (occurrence: None)
  Receive Date: 20050429
  Receipt Date: 20050405
  Transmission Date: 20051028
  Serious: No
  Sender: FDA-Public Use
  Company Number: 10810

PATIENT
  Age: 84 Year
  Sex: Female

DRUGS (5)
  1. LEUCOVORIN CALCIUM [Suspect]
     Indication: COLON CANCER
     Dosage: 150 MG OTH IV
     Route: 042
     Dates: start: 20050217, end: 20050331
  2. FLUOROURACIL [Concomitant]
  3. ACETLSALICYLIC ACID [Concomitant]
  4. CANDESARTAN CILEXETIL [Concomitant]
  5. HYDROCHLOROTHIAZIDE [Concomitant]

REACTIONS (1)
  - HEMIPLEGIA [None]
